FAERS Safety Report 12892279 (Version 9)
Quarter: 2017Q2

REPORT INFORMATION
  Report Type: Spontaneous
  Country: US (occurrence: US)
  Receive Date: 20161028
  Receipt Date: 20170614
  Transmission Date: 20170830
  Serious: Yes (Other)
  Sender: FDA-Public Use
  Company Number: PHEH2016US027996

PATIENT
  Age: 38 Year
  Sex: Female
  Weight: 104.31 kg

DRUGS (4)
  1. ONDANSETRON [Suspect]
     Active Substance: ONDANSETRON
     Indication: PRODUCT USED FOR UNKNOWN INDICATION
     Route: 042
     Dates: start: 201309, end: 201309
  2. ZOFRAN ODT [Suspect]
     Active Substance: ONDANSETRON HYDROCHLORIDE
     Indication: VOMITING IN PREGNANCY
     Route: 048
  3. ONDANSETRON [Suspect]
     Active Substance: ONDANSETRON
     Indication: PRODUCT USED FOR UNKNOWN INDICATION
     Route: 065
     Dates: start: 201309, end: 201309
  4. ZOFRAN [Suspect]
     Active Substance: ONDANSETRON HYDROCHLORIDE
     Indication: VOMITING IN PREGNANCY
     Dosage: 1 DF, PRN
     Route: 048

REACTIONS (27)
  - Large intestine benign neoplasm [Unknown]
  - Intervertebral disc protrusion [Unknown]
  - Fibromyalgia [Unknown]
  - Tenosynovitis stenosans [Unknown]
  - Endometriosis [Unknown]
  - Dysplasia [Unknown]
  - Trigger finger [Unknown]
  - Gastrooesophageal reflux disease [Unknown]
  - Maternal exposure during pregnancy [Unknown]
  - Chlamydial infection [Unknown]
  - Myalgia [Unknown]
  - Abdominal pain [Unknown]
  - Anxiety [Unknown]
  - Type 2 diabetes mellitus [Unknown]
  - Haemorrhoids [Unknown]
  - Product use in unapproved indication [Unknown]
  - Premature delivery [Unknown]
  - Myositis [Unknown]
  - Carpal tunnel syndrome [Unknown]
  - Dyspnoea [Unknown]
  - Gestational hypertension [Unknown]
  - Osteoarthritis [Unknown]
  - Radiculopathy [Unknown]
  - Injury [Unknown]
  - Muscle spasms [Unknown]
  - Tenosynovitis [Unknown]
  - Vitamin D deficiency [Unknown]

NARRATIVE: CASE EVENT DATE: 20140219
